FAERS Safety Report 11530145 (Version 2)
Quarter: 2015Q4

REPORT INFORMATION
  Report Type: Report from Study
  Country: ES (occurrence: ES)
  Receive Date: 20150921
  Receipt Date: 20151013
  Transmission Date: 20160304
  Serious: Yes (Hospitalization, Other)
  Sender: FDA-Public Use
  Company Number: PHHO2015ES014380

PATIENT
  Age: 58 Year
  Sex: Male
  Weight: 84.5 kg

DRUGS (11)
  1. CARVEDILOL. [Concomitant]
     Active Substance: CARVEDILOL
     Indication: CARDIAC FAILURE CHRONIC
  2. PREDNISONE. [Suspect]
     Active Substance: PREDNISONE
     Indication: RENAL TRANSPLANT
     Dosage: 5 MG, QD
     Route: 048
     Dates: start: 20141211
  3. CALCITRIOL. [Concomitant]
     Active Substance: CALCITRIOL
     Indication: HYPOCALCAEMIA
     Dosage: 0.5 MG, QD
     Route: 048
  4. AMLODIPINE [Concomitant]
     Active Substance: AMLODIPINE BESYLATE
     Indication: HYPERTENSION
     Dosage: 2.5 MG, QD
     Route: 048
  5. PROGRAF [Suspect]
     Active Substance: TACROLIMUS\TACROLIMUS ANHYDROUS
     Indication: RENAL TRANSPLANT
     Dosage: 1.5 MG, BID
     Route: 048
     Dates: start: 20150528
  6. IMIPENEM [Suspect]
     Active Substance: IMIPENEM
     Indication: PRODUCT USED FOR UNKNOWN INDICATION
     Dosage: UNK
     Route: 065
     Dates: start: 20150820
  7. OMEPRAZOLE. [Concomitant]
     Active Substance: OMEPRAZOLE
     Indication: GASTROOESOPHAGEAL REFLUX DISEASE
     Dosage: 20 MG, QD
     Route: 048
  8. MYFORTIC [Suspect]
     Active Substance: MYCOPHENOLATE SODIUM
     Indication: RENAL TRANSPLANT
     Dosage: 540 MG, BID
     Route: 048
     Dates: start: 20150715
  9. NO TREATMENT RECEIVED [Suspect]
     Active Substance: UNSPECIFIED INGREDIENT
     Indication: RENAL TRANSPLANT
     Dosage: NO TREATMENT
     Route: 065
  10. DOXAZOSINE [Concomitant]
     Active Substance: DOXAZOSIN MESYLATE
     Indication: HYPERTENSION
     Dosage: 12 MG, QD
     Route: 048
  11. CARVEDILOL. [Concomitant]
     Active Substance: CARVEDILOL
     Indication: HYPERTENSION
     Dosage: 12.5 MG, QD
     Route: 048

REACTIONS (4)
  - Urinary tract infection [Recovered/Resolved]
  - Dysuria [Recovered/Resolved]
  - Pyrexia [Recovered/Resolved]
  - Urticaria [Recovered/Resolved]

NARRATIVE: CASE EVENT DATE: 20150810
